FAERS Safety Report 13739763 (Version 1)
Quarter: 2017Q3

REPORT INFORMATION
  Report Type: Spontaneous
  Country: US (occurrence: US)
  Receive Date: 20170711
  Receipt Date: 20170711
  Transmission Date: 20171127
  Serious: No
  Sender: FDA-Public Use
  Company Number: US-GLAXOSMITHKLINE-US2017GSK104425

PATIENT
  Sex: Female
  Weight: 63.5 kg

DRUGS (9)
  1. LITHIUM. [Suspect]
     Active Substance: LITHIUM
     Indication: ANXIETY
  2. WELLBUTRIN [Suspect]
     Active Substance: BUPROPION HYDROCHLORIDE
     Indication: ANXIETY
  3. KLONOPIN [Suspect]
     Active Substance: CLONAZEPAM
     Indication: PERINATAL DEPRESSION
     Dosage: 1 MG, BID
     Dates: start: 201704
  4. LEVOTHYROXINE. [Concomitant]
     Active Substance: LEVOTHYROXINE
     Indication: HYPOTHYROIDISM
     Dosage: 50 UG, QD
     Dates: start: 2009
  5. KLONOPIN [Suspect]
     Active Substance: CLONAZEPAM
     Indication: ANXIETY
  6. LITHIUM. [Suspect]
     Active Substance: LITHIUM
     Indication: PERINATAL DEPRESSION
     Dosage: 900 MG, QD
     Route: 048
     Dates: start: 201704
  7. TRINTELLIX [Suspect]
     Active Substance: VORTIOXETINE HYDROBROMIDE
     Indication: PERINATAL DEPRESSION
     Dosage: 20 MG, QD
     Route: 048
     Dates: start: 201704
  8. WELLBUTRIN [Suspect]
     Active Substance: BUPROPION HYDROCHLORIDE
     Indication: PERINATAL DEPRESSION
     Dosage: 300 MG, QD
     Dates: start: 201704
  9. MIRAPEX [Suspect]
     Active Substance: PRAMIPEXOLE DIHYDROCHLORIDE
     Indication: PERINATAL DEPRESSION
     Dosage: 0.5 MG, QD
     Dates: start: 201704

REACTIONS (1)
  - Drug effect incomplete [Unknown]
